FAERS Safety Report 15544675 (Version 3)
Quarter: 2018Q4

REPORT INFORMATION
  Report Type: Report from Study
  Country: BR (occurrence: BR)
  Receive Date: 20181024
  Receipt Date: 20181120
  Transmission Date: 20190205
  Serious: Yes (Life-Threatening, Other)
  Sender: FDA-Public Use
  Company Number: BR-ROCHE-2203431

PATIENT
  Age: 62 Year
  Sex: Female
  Weight: 65 kg

DRUGS (1)
  1. XOLAIR [Suspect]
     Active Substance: OMALIZUMAB
     Indication: ASTHMA
     Route: 058
     Dates: start: 20180912

REACTIONS (22)
  - Dysphonia [Not Recovered/Not Resolved]
  - Bronchospasm [Unknown]
  - Feeling abnormal [Unknown]
  - Arthralgia [Not Recovered/Not Resolved]
  - Oral pain [Unknown]
  - Anaphylactic shock [Unknown]
  - Pain in extremity [Unknown]
  - Glossitis [Recovering/Resolving]
  - Swelling [Not Recovered/Not Resolved]
  - Chest discomfort [Unknown]
  - Malaise [Not Recovered/Not Resolved]
  - Aphasia [Not Recovered/Not Resolved]
  - Noninfective gingivitis [Unknown]
  - Mouth injury [Recovering/Resolving]
  - Oropharyngeal pain [Recovering/Resolving]
  - Arthritis helminthic [Unknown]
  - Lip pain [Unknown]
  - Stomatitis [Unknown]
  - Aphthous ulcer [Recovering/Resolving]
  - Hypersensitivity [Recovering/Resolving]
  - Finger deformity [Recovering/Resolving]
  - Asthenia [Not Recovered/Not Resolved]

NARRATIVE: CASE EVENT DATE: 20180913
